FAERS Safety Report 19812323 (Version 1)
Quarter: 2021Q3

REPORT INFORMATION
  Report Type: Spontaneous
  Country: US (occurrence: US)
  Receive Date: 20210910
  Receipt Date: 20210910
  Transmission Date: 20211014
  Serious: Yes (Other)
  Sender: FDA-Public Use
  Company Number: US-ROCHE-2905532

PATIENT

DRUGS (1)
  1. ROZLYTREK [Suspect]
     Active Substance: ENTRECTINIB
     Indication: SALIVARY GLAND NEOPLASM
     Dosage: YES
     Route: 048

REACTIONS (3)
  - Anaemia [Unknown]
  - Renal impairment [Unknown]
  - Off label use [Unknown]
